FAERS Safety Report 5677557-6 (Version None)
Quarter: 2008Q1

REPORT INFORMATION
  Report Type: 
  Country: None (occurrence: None)
  Receive Date: 20080318
  Receipt Date: 20080229
  Transmission Date: 20080703
  Serious: Yes (Other)
  Sender: FDA-Public Use
  Company Number: PHHY2008JP02006

PATIENT
  Age: 71 Year
  Sex: Male

DRUGS (1)
  1. VISUDYNE [Suspect]
     Indication: POLYPOIDAL CHOROIDAL VASCULOPATHY

REACTIONS (4)
  - CHOROIDAL NEOVASCULARISATION [None]
  - DISEASE PROGRESSION [None]
  - RETINAL DETACHMENT [None]
  - RETINAL HAEMORRHAGE [None]
